FAERS Safety Report 9209641 (Version 1)
Quarter: 2013Q2

REPORT INFORMATION
  Report Type: Spontaneous
  Country: US (occurrence: US)
  Receive Date: 20130404
  Receipt Date: 20130404
  Transmission Date: 20140414
  Serious: No
  Sender: FDA-Public Use
  Company Number: US-BAYER-2013-042565

PATIENT
  Age: 61 Year
  Sex: Male
  Weight: 123 kg

DRUGS (14)
  1. ALEVE CAPLET [Suspect]
     Indication: ARTHRITIS
     Dosage: 4 DF, ONCE
     Route: 048
     Dates: start: 20130101, end: 20130101
  2. TAZTIA [Concomitant]
  3. LOSARTAN [Concomitant]
  4. CITALOPRAM [Concomitant]
  5. SIMVASTATIN [Concomitant]
  6. POTASSIUM [Concomitant]
  7. WATER PILL [Concomitant]
  8. RANITIDINE [Concomitant]
  9. OMEPRAZOLE [Concomitant]
  10. NITROGLYCERINE [Concomitant]
  11. FIBER THERAPY [Concomitant]
  12. MELATONIN [Concomitant]
  13. BABY ASPIRIN [Concomitant]
     Indication: ISCHAEMIC HEART DISEASE PROPHYLAXIS
  14. STOOL SOFTENER [Concomitant]

REACTIONS (1)
  - Overdose [None]
